FAERS Safety Report 10951093 (Version 1)
Quarter: 2015Q1

REPORT INFORMATION
  Report Type: Spontaneous
  Country: IT (occurrence: IT)
  Receive Date: 20150324
  Receipt Date: 20150324
  Transmission Date: 20150721
  Serious: Yes (Hospitalization)
  Sender: FDA-Public Use
  Company Number: IT-B.I. PHARMACEUTICALS,INC./RIDGEFIELD-2015-BI-15049IT

PATIENT
  Age: 47 Year
  Sex: Female

DRUGS (4)
  1. CARDURA [Suspect]
     Active Substance: DOXAZOSIN MESYLATE
     Indication: DRUG ABUSE
     Route: 048
     Dates: start: 20141103, end: 20141103
  2. NORVASC [Suspect]
     Active Substance: AMLODIPINE BESYLATE
     Indication: DRUG ABUSE
     Route: 048
     Dates: start: 20141103, end: 20141103
  3. MIRAPEXIN [Suspect]
     Active Substance: PRAMIPEXOLE
     Indication: DRUG ABUSE
     Route: 048
     Dates: start: 20141103, end: 20141103
  4. VENLAFAXINE [Suspect]
     Active Substance: VENLAFAXINE HYDROCHLORIDE
     Indication: DRUG ABUSE
     Route: 048
     Dates: start: 20141103, end: 20141103

REACTIONS (2)
  - Drug abuse [Unknown]
  - Toxicity to various agents [Unknown]

NARRATIVE: CASE EVENT DATE: 20141103
